FAERS Safety Report 5677740-X (Version None)
Quarter: 2008Q1

REPORT INFORMATION
  Report Type: 
  Country: None (occurrence: None)
  Receive Date: 20080324
  Receipt Date: 20070412
  Transmission Date: 20080703
  Serious: No
  Sender: FDA-Public Use
  Company Number: US-ABBOTT-07P-163-0365158-00

PATIENT
  Sex: Male
  Weight: 74.91 kg

DRUGS (2)
  1. BIAXIN XL [Suspect]
     Indication: LYME DISEASE
     Route: 048
     Dates: start: 20060101
  2. TINDAMAX [Concomitant]
     Indication: LYME DISEASE
     Route: 048
     Dates: start: 20060101

REACTIONS (1)
  - MEDICATION RESIDUE [None]
